FAERS Safety Report 9853322 (Version 3)
Quarter: 2014Q1

REPORT INFORMATION
  Report Type: Spontaneous
  Country: BR (occurrence: BR)
  Receive Date: 20140129
  Receipt Date: 20140221
  Transmission Date: 20141002
  Serious: Yes (Hospitalization, Other)
  Sender: FDA-Public Use
  Company Number: BR-MERCK-1312BRA009806

PATIENT
  Age: 65 Year
  Sex: Female
  Weight: 75 kg

DRUGS (9)
  1. PEG-INTRON [Suspect]
     Indication: HEPATITIS C
     Dosage: UNK, QW
     Route: 058
     Dates: start: 201309, end: 20140106
  2. LOTAR [Concomitant]
     Indication: HYPERTENSION
     Dosage: UNK, PRN
     Route: 048
     Dates: start: 2011
  3. GLYBURIDE [Concomitant]
     Indication: DIABETES MELLITUS
     Dosage: 5 MG, QD
     Route: 048
  4. RIBAVIRIN [Concomitant]
     Indication: HEPATITIS C
     Dosage: 500 MG, BID
     Dates: start: 201309, end: 20131215
  5. RIBAVIRIN [Concomitant]
     Dosage: 750 MG, QD
     Dates: start: 20131215, end: 20140106
  6. TELAPREVIR [Concomitant]
     Indication: HEPATITIS C
     Dosage: 750 MG, TID
     Dates: start: 20131210, end: 20140106
  7. EPOETIN [Concomitant]
     Indication: ANAEMIA
     Dosage: 10 MG, BIW
     Dates: start: 20131107
  8. PROPRANOLOL HYDROCHLORIDE [Concomitant]
     Indication: HYPERTENSION
     Dosage: 10 MG, QD
     Route: 048
  9. AMLODIPINE [Concomitant]
     Indication: HYPERTENSION
     Dosage: 5 MG, QD
     Route: 048

REACTIONS (14)
  - Confusional state [Recovered/Resolved]
  - Anaemia [Recovered/Resolved]
  - Malaise [Recovered/Resolved]
  - Somnolence [Recovered/Resolved]
  - Muscle spasms [Recovered/Resolved]
  - Encephalopathy [Recovered/Resolved]
  - Constipation [Recovered/Resolved]
  - Abdominal distension [Unknown]
  - Coordination abnormal [Not Recovered/Not Resolved]
  - Platelet count decreased [Unknown]
  - Hypothyroidism [Not Recovered/Not Resolved]
  - Transfusion [Unknown]
  - Anaemia [Not Recovered/Not Resolved]
  - Enema administration [Unknown]
